FAERS Safety Report 7259514-1 (Version None)
Quarter: 2011Q1

REPORT INFORMATION
  Report Type: 
  Country: None (occurrence: None)
  Receive Date: 20110129
  Receipt Date: 20100706
  Transmission Date: 20110831
  Serious: No
  Sender: FDA-Public Use
  Company Number: US-PFIZER INC-2010084936

PATIENT
  Sex: Female
  Weight: 56.689 kg

DRUGS (5)
  1. RELPAX [Suspect]
     Indication: MIGRAINE
     Dosage: 40 MG, 2X/DAY
     Route: 048
     Dates: start: 20100705
  2. ACETAMINOPHEN AND OXYCODONE HCL [Concomitant]
     Indication: PAIN
     Dosage: UNK
  3. MORPHINE [Concomitant]
     Indication: PAIN
     Dosage: UNK
  4. MORPHINE SULFATE [Concomitant]
     Indication: INTERVERTEBRAL DISC PROTRUSION
     Dosage: 30 MG, 6X/DAY
     Route: 048
  5. ACETYLSALICYLIC ACID [Concomitant]
     Dosage: UNK, AS NEEDED
     Route: 048

REACTIONS (4)
  - MIGRAINE [None]
  - ABDOMINAL DISCOMFORT [None]
  - DRUG INEFFECTIVE [None]
  - VOMITING [None]
